FAERS Safety Report 24567383 (Version 2)
Quarter: 2025Q3

REPORT INFORMATION
  Report Type: Spontaneous
  Country: CN (occurrence: CN)
  Receive Date: 20241030
  Receipt Date: 20250803
  Transmission Date: 20251021
  Serious: Yes (Hospitalization)
  Sender: ALEXION PHARMACEUTICALS
  Company Number: 4206831535553202400427

PATIENT
  Age: 58 Year
  Sex: Female

DRUGS (1)
  1. TICAGRELOR [Suspect]
     Active Substance: TICAGRELOR
     Indication: Coronary artery disease
     Dosage: 90 MILLIGRAM, BID
     Dates: start: 20240819, end: 20240820

REACTIONS (2)
  - Tachypnoea [Recovering/Resolving]
  - Dyspnoea [Recovering/Resolving]
